FAERS Safety Report 21073860 (Version 2)
Quarter: 2025Q3

REPORT INFORMATION
  Report Type: Spontaneous
  Country: CA (occurrence: CA)
  Receive Date: 20220713
  Receipt Date: 20250718
  Transmission Date: 20251021
  Serious: Yes (Other)
  Sender: PIRAMAL
  Company Number: CA-PIRAMAL CRITICAL CARE LIMITED-2022-PEL-000348

PATIENT

DRUGS (10)
  1. SEVOFLURANE [Suspect]
     Active Substance: SEVOFLURANE
     Indication: Maintenance of anaesthesia
  2. DEXAMETHASONE [Suspect]
     Active Substance: DEXAMETHASONE
     Indication: Prophylaxis of nausea and vomiting
     Route: 065
  3. FENTANYL [Suspect]
     Active Substance: FENTANYL
     Indication: Induction of anaesthesia
     Route: 065
  4. KETOROLAC TROMETHAMINE [Suspect]
     Active Substance: KETOROLAC TROMETHAMINE
     Indication: Analgesic therapy
     Route: 065
  5. LIDOCAINE HYDROCHLORIDE [Suspect]
     Active Substance: LIDOCAINE HYDROCHLORIDE
     Indication: Induction of anaesthesia
     Route: 065
  6. ONDANSETRON [Suspect]
     Active Substance: ONDANSETRON
     Indication: Prophylaxis of nausea and vomiting
     Route: 065
  7. PROPOFOL [Suspect]
     Active Substance: PROPOFOL
     Indication: Induction of anaesthesia
     Route: 065
  8. ROPIVACAINE HYDROCHLORIDE [Suspect]
     Active Substance: ROPIVACAINE HYDROCHLORIDE
     Indication: Nerve block
     Route: 065
  9. SUCCINYLCHOLINE [Suspect]
     Active Substance: SUCCINYLCHOLINE
     Indication: Neuromuscular blockade
     Route: 065
  10. SUCCINYLCHOLINE CHLORIDE [Suspect]
     Active Substance: SUCCINYLCHOLINE CHLORIDE
     Indication: Neuromuscular blockade

REACTIONS (2)
  - Phrenic nerve paralysis [Recovered/Resolved]
  - Tracheal deviation [Recovered/Resolved]
